FAERS Safety Report 10274748 (Version 2)
Quarter: 2014Q3

REPORT INFORMATION
  Report Type: Report from Study
  Country: US (occurrence: US)
  Receive Date: 20140702
  Receipt Date: 20140702
  Transmission Date: 20150326
  Serious: Yes (Other)
  Sender: FDA-Public Use
  Company Number: US-ABBVIE-11P-163-0699938-00

PATIENT
  Age: 50 Year
  Sex: Female

DRUGS (40)
  1. HUMIRA [Suspect]
     Active Substance: ADALIMUMAB
     Dates: start: 20140418, end: 201406
  2. NIASPAN [Concomitant]
     Active Substance: NIACIN
     Indication: BLOOD CHOLESTEROL INCREASED
  3. HYDROCODONE [Concomitant]
     Active Substance: HYDROCODONE
     Indication: PAIN
  4. CYMBALTA [Concomitant]
     Active Substance: DULOXETINE HYDROCHLORIDE
     Indication: BIPOLAR DISORDER
     Dates: end: 2014
  5. ATARAX [Concomitant]
     Active Substance: HYDROXYZINE\HYDROXYZINE HYDROCHLORIDE
     Indication: PRURITUS
  6. LIDODERM [Concomitant]
     Active Substance: LIDOCAINE
     Indication: PAIN
     Route: 062
  7. REGLAN [Concomitant]
     Active Substance: METOCLOPRAMIDE HYDROCHLORIDE
     Indication: GASTRIC DISORDER
  8. PRAVACHOL [Concomitant]
     Active Substance: PRAVASTATIN SODIUM
     Indication: BLOOD CHOLESTEROL ABNORMAL
  9. LEVOXYL [Concomitant]
     Active Substance: LEVOTHYROXINE SODIUM
     Indication: HYPOTHYROIDISM
  10. FLUOROMETHOLONE. [Concomitant]
     Active Substance: FLUOROMETHOLONE
     Indication: DRY EYE
  11. ACTOS [Concomitant]
     Active Substance: PIOGLITAZONE HYDROCHLORIDE
     Indication: DIABETES MELLITUS
  12. VITAMIN D [Concomitant]
     Active Substance: CHOLECALCIFEROL
     Indication: PRODUCT USED FOR UNKNOWN INDICATION
     Dates: end: 2014
  13. AMARYL [Concomitant]
     Active Substance: GLIMEPIRIDE
     Indication: DIABETES MELLITUS
  14. AZELASTINE [Concomitant]
     Active Substance: AZELASTINE
     Indication: HYPERSENSITIVITY
  15. ZESTRIL [Concomitant]
     Active Substance: LISINOPRIL
     Indication: RENAL DISORDER
  16. ZYRTEC [Concomitant]
     Active Substance: CETIRIZINE HYDROCHLORIDE
     Indication: HYPERSENSITIVITY
  17. TRADJENTA [Concomitant]
     Active Substance: LINAGLIPTIN
     Indication: DIABETES MELLITUS
  18. BEPREVA [Concomitant]
     Indication: HYPERSENSITIVITY
     Dosage: EYE DROPS
  19. AMBIEN [Concomitant]
     Active Substance: ZOLPIDEM TARTRATE
     Indication: INSOMNIA
  20. EFFEXOR [Concomitant]
     Active Substance: VENLAFAXINE HYDROCHLORIDE
     Indication: BIPOLAR DISORDER
  21. LASIX [Concomitant]
     Active Substance: FUROSEMIDE
     Indication: PRODUCT USED FOR UNKNOWN INDICATION
  22. TRICOR [Concomitant]
     Active Substance: FENOFIBRATE
     Indication: BLOOD CHOLESTEROL INCREASED
  23. HUMIRA [Suspect]
     Active Substance: ADALIMUMAB
     Indication: PSORIASIS
     Dates: start: 201003
  24. ATENOLOL. [Concomitant]
     Active Substance: ATENOLOL
     Indication: RENAL DISORDER
  25. ARTANE [Concomitant]
     Active Substance: TRIHEXYPHENIDYL HYDROCHLORIDE
     Indication: ANXIETY
  26. ABILIFY [Concomitant]
     Active Substance: ARIPIPRAZOLE
     Indication: BIPOLAR DISORDER
     Dates: end: 2014
  27. DECLAN [Concomitant]
     Indication: DEPRESSION
     Dates: end: 2014
  28. MAGNESIUM [Concomitant]
     Active Substance: MAGNESIUM
     Indication: PRODUCT USED FOR UNKNOWN INDICATION
  29. NOVOLOG [Concomitant]
     Active Substance: INSULIN ASPART
     Indication: DIABETES MELLITUS
     Dosage: 70/30
  30. XANAX [Concomitant]
     Active Substance: ALPRAZOLAM
     Indication: PRODUCT USED FOR UNKNOWN INDICATION
  31. PRILOSEC [Concomitant]
     Active Substance: OMEPRAZOLE MAGNESIUM
     Indication: GASTRIC DISORDER
  32. VITAMIN D [Concomitant]
     Active Substance: CHOLECALCIFEROL
     Indication: PRODUCT USED FOR UNKNOWN INDICATION
  33. TRAMADOL [Concomitant]
     Active Substance: TRAMADOL
     Indication: PAIN
  34. CYCLOSPORINE. [Suspect]
     Active Substance: CYCLOSPORINE
     Indication: PRODUCT USED FOR UNKNOWN INDICATION
  35. SAVELLA [Concomitant]
     Active Substance: MILNACIPRAN HYDROCHLORIDE
     Indication: FIBROMYALGIA
  36. ATENOLOL. [Concomitant]
     Active Substance: ATENOLOL
     Indication: PROPHYLAXIS
  37. REMERON [Concomitant]
     Active Substance: MIRTAZAPINE
     Indication: INSOMNIA
     Dates: end: 2014
  38. INVEGA [Concomitant]
     Active Substance: PALIPERIDONE
     Indication: MENTAL STATUS CHANGES
  39. LIPITOR [Concomitant]
     Active Substance: ATORVASTATIN CALCIUM
     Indication: BLOOD CHOLESTEROL INCREASED
  40. SINGULAIR [Concomitant]
     Active Substance: MONTELUKAST SODIUM
     Indication: HYPERSENSITIVITY

REACTIONS (24)
  - Psoriasis [Not Recovered/Not Resolved]
  - Skin fissures [Not Recovered/Not Resolved]
  - Blood creatinine increased [Recovering/Resolving]
  - Cardiac murmur [Unknown]
  - Insomnia [Unknown]
  - Anxiety [Unknown]
  - Psoriasis [Unknown]
  - Skin haemorrhage [Not Recovered/Not Resolved]
  - Wound haemorrhage [Not Recovered/Not Resolved]
  - Wound complication [Not Recovered/Not Resolved]
  - Depression [Unknown]
  - Rash erythematous [Recovering/Resolving]
  - Gait disturbance [Unknown]
  - Blood pressure increased [Unknown]
  - Urticaria [Not Recovered/Not Resolved]
  - Rash vesicular [Not Recovered/Not Resolved]
  - Psoriasis [Not Recovered/Not Resolved]
  - Skin cancer [Unknown]
  - Drug effect decreased [Not Recovered/Not Resolved]
  - Heart rate increased [Unknown]
  - Pruritus [Recovering/Resolving]
  - Gallbladder operation [Recovering/Resolving]
  - Skin exfoliation [Not Recovered/Not Resolved]
  - Chest pain [Unknown]

NARRATIVE: CASE EVENT DATE: 201010
